FAERS Safety Report 10255960 (Version 2)
Quarter: 2014Q2

REPORT INFORMATION
  Report Type: Report from Study
  Country: NL (occurrence: NL)
  Receive Date: 20140624
  Receipt Date: 20140624
  Transmission Date: 20141212
  Serious: Yes (Hospitalization)
  Sender: FDA-Public Use
  Company Number: NL-GLAXOSMITHKLINE-B0714097B

PATIENT
  Age: 66 Year
  Sex: Female

DRUGS (7)
  1. PAZOPANIB [Suspect]
     Indication: MALIGNANT NEOPLASM PROGRESSION
     Route: 048
     Dates: start: 20110308
  2. IFOSFAMIDE [Suspect]
     Indication: MALIGNANT NEOPLASM PROGRESSION
     Route: 042
     Dates: start: 20110301, end: 20110408
  3. NIFEDIPINE [Concomitant]
     Dosage: 30MG PER DAY
     Route: 048
     Dates: start: 20110419
  4. ZOLPIDEM [Concomitant]
     Route: 048
     Dates: start: 20110419
  5. FOLIC ACID [Concomitant]
     Dosage: .5MG PER DAY
     Route: 048
     Dates: start: 20110419
  6. KALIUMCHLORIDE [Concomitant]
     Dosage: 600MG THREE TIMES PER DAY
     Route: 048
     Dates: start: 20110419
  7. METOCLOPRAMIDE [Concomitant]
     Dosage: 10MG THREE TIMES PER DAY
     Dates: start: 20110419

REACTIONS (2)
  - Dyspnoea [Not Recovered/Not Resolved]
  - Hypokalaemia [Not Recovered/Not Resolved]
